FAERS Safety Report 6402061-7 (Version None)
Quarter: 2009Q4

REPORT INFORMATION
  Report Type: 
  Country: None (occurrence: None)
  Receive Date: 20091015
  Receipt Date: 20091012
  Transmission Date: 20100525
  Serious: Yes (Hospitalization, Other)
  Sender: FDA-Public Use
  Company Number: FR-BRISTOL-MYERS SQUIBB COMPANY-14815351

PATIENT
  Age: 85 Year
  Sex: Female

DRUGS (3)
  1. COAPROVEL TABS 150MG/12.5MG [Suspect]
     Dosage: 1 DF = 150MG/12.5MG
     Route: 048
     Dates: end: 20090226
  2. TRIATEC [Suspect]
     Route: 048
     Dates: end: 20090226
  3. LASILIX [Concomitant]

REACTIONS (3)
  - DEHYDRATION [None]
  - INFLAMMATION [None]
  - RENAL FAILURE ACUTE [None]
